FAERS Safety Report 12830378 (Version 2)
Quarter: 2019Q2

REPORT INFORMATION
  Report Type: Report from Study
  Country: US (occurrence: US)
  Receive Date: 20161007
  Receipt Date: 20190416
  Transmission Date: 20190711
  Serious: Yes (Hospitalization, Other)
  Sender: FDA-Public Use
  Company Number: US-SA-2016SA128078

PATIENT
  Age: 46 Year
  Sex: Female

DRUGS (1)
  1. TERIFLUNOMIDE. [Suspect]
     Active Substance: TERIFLUNOMIDE
     Indication: MULTIPLE SCLEROSIS
     Dosage: 14 MG, QD
     Route: 048
     Dates: start: 20131118

REACTIONS (10)
  - Menstruation irregular [Not Recovered/Not Resolved]
  - Pyrexia [Unknown]
  - Vertigo [Not Recovered/Not Resolved]
  - Tooth infection [Unknown]
  - Balance disorder [Not Recovered/Not Resolved]
  - Breast mass [Recovered/Resolved]
  - Multiple sclerosis relapse [Recovered/Resolved]
  - Thyroid mass [Not Recovered/Not Resolved]
  - Hyperhidrosis [Unknown]
  - Headache [Not Recovered/Not Resolved]

NARRATIVE: CASE EVENT DATE: 201809
